FAERS Safety Report 11842008 (Version 1)
Quarter: 2015Q4

REPORT INFORMATION
  Report Type: Spontaneous
  Country: US (occurrence: US)
  Receive Date: 20151216
  Receipt Date: 20151216
  Transmission Date: 20160305
  Serious: No
  Sender: FDA-Public Use
  Company Number: US-RB-072858-15

PATIENT
  Age: 50 Year
  Sex: Female

DRUGS (1)
  1. DELSYM [Suspect]
     Active Substance: DEXTROMETHORPHAN
     Indication: COUGH
     Dosage: 10ML. PATIENT USED 2 10ML DOSES WITH 24 HOURS; AMOUNT USED: 20 ML; TOOK PRODUCT LAST ON  20-JAN-2015
     Route: 065
     Dates: start: 20150119

REACTIONS (1)
  - Drug ineffective [Not Recovered/Not Resolved]
